FAERS Safety Report 13944730 (Version 1)
Quarter: 2017Q3

REPORT INFORMATION
  Report Type: Spontaneous
  Country: US (occurrence: US)
  Receive Date: 20170907
  Receipt Date: 20170907
  Transmission Date: 20171128
  Serious: No
  Sender: FDA-Public Use
  Company Number: US-ROCHE-1234406

PATIENT
  Age: 43 Year
  Sex: Female

DRUGS (4)
  1. RITUXAN [Suspect]
     Active Substance: RITUXIMAB
     Indication: RHEUMATOID ARTHRITIS
     Dosage: ^RA DOSE^
     Route: 042
  2. ACTEMRA [Suspect]
     Active Substance: TOCILIZUMAB
     Indication: RHEUMATOID ARTHRITIS
     Route: 065
  3. ORENCIA [Concomitant]
     Active Substance: ABATACEPT
  4. REMICADE [Concomitant]
     Active Substance: INFLIXIMAB

REACTIONS (6)
  - Feeling hot [Unknown]
  - Blood pressure increased [Unknown]
  - Abdominal distension [Unknown]
  - Diverticulitis [Unknown]
  - Hypersensitivity [Unknown]
  - Panic reaction [Unknown]
